FAERS Safety Report 5917528-5 (Version None)
Quarter: 2008Q4

REPORT INFORMATION
  Report Type: 
  Country: None (occurrence: None)
  Receive Date: 20081010
  Receipt Date: 20081010
  Transmission Date: 20090506
  Serious: Yes (Life-Threatening, Hospitalization)
  Sender: FDA-Public Use
  Company Number: None

PATIENT
  Age: 15 Year
  Sex: Female
  Weight: 33.1126 kg

DRUGS (7)
  1. LAMOTRIGINE [Suspect]
     Indication: BIPOLAR DISORDER
     Dosage: 200MG QHS
     Dates: start: 20080901, end: 20080930
  2. LAMOTRIGINE [Concomitant]
  3. DEPAKOTE [Concomitant]
  4. EFFEXOR [Concomitant]
  5. RISPERDAL [Concomitant]
  6. ABILIFY [Concomitant]
  7. MULTI-VITAMIN [Concomitant]

REACTIONS (12)
  - BLISTER [None]
  - ERYTHEMA [None]
  - EYE DISORDER [None]
  - OROPHARYNGEAL PAIN [None]
  - PAIN IN EXTREMITY [None]
  - PYREXIA [None]
  - RASH MACULO-PAPULAR [None]
  - RHINORRHOEA [None]
  - STEVENS-JOHNSON SYNDROME [None]
  - STOMATITIS [None]
  - WHEEZING [None]
  - WHITE BLOOD CELL COUNT DECREASED [None]
